FAERS Safety Report 15740041 (Version 1)
Quarter: 2018Q4

REPORT INFORMATION
  Report Type: Spontaneous
  Country: US (occurrence: US)
  Receive Date: 20181204
  Receipt Date: 20181204
  Transmission Date: 20190205
  Serious: No
  Sender: FDA-Public Use
  Company Number: None

PATIENT
  Age: 42 Year
  Sex: Male

DRUGS (1)
  1. STELARA [Suspect]
     Active Substance: USTEKINUMAB
     Indication: PSORIASIS
     Dosage: ?          OTHER STRENGTH:45/0.5 MG;?
     Dates: start: 20141001

REACTIONS (3)
  - Psoriasis [None]
  - Disease recurrence [None]
  - Product dose omission [None]

NARRATIVE: CASE EVENT DATE: 20181103
